FAERS Safety Report 17430161 (Version 2)
Quarter: 2020Q1

REPORT INFORMATION
  Report Type: Spontaneous
  Country: US (occurrence: US)
  Receive Date: 20200218
  Receipt Date: 20200219
  Transmission Date: 20200409
  Serious: No
  Sender: FDA-Public Use
  Company Number: US-PFIZER INC-2020069226

PATIENT
  Age: 72 Year
  Sex: Female

DRUGS (2)
  1. INSULIN [Concomitant]
     Active Substance: INSULIN NOS
     Dosage: UNK, 4X/DAY
  2. VENLAFAXINE HCL [Suspect]
     Active Substance: VENLAFAXINE HYDROCHLORIDE
     Dosage: 150 MG, 2X/DAY

REACTIONS (2)
  - Prescribed overdose [Unknown]
  - Drug ineffective [Unknown]
